FAERS Safety Report 9392210 (Version 3)
Quarter: 2015Q2

REPORT INFORMATION
  Report Type: Report from Study
  Country: US (occurrence: US)
  Receive Date: 20130710
  Receipt Date: 20150401
  Transmission Date: 20150821
  Serious: Yes (Death, Hospitalization, Other)
  Sender: FDA-Public Use
  Company Number: US-ROCHE-1246841

PATIENT
  Age: 45 Year
  Sex: Male

DRUGS (24)
  1. VALIUM [Concomitant]
     Active Substance: DIAZEPAM
     Route: 065
  2. VIGAMOX [Concomitant]
     Active Substance: MOXIFLOXACIN HYDROCHLORIDE
     Dosage: BOTH EYES
     Route: 065
  3. LASIX [Concomitant]
     Active Substance: FUROSEMIDE
     Route: 065
  4. LANTUS [Concomitant]
     Active Substance: INSULIN GLARGINE
     Dosage: 100 UNIT/ML
     Route: 058
  5. ZYMAR [Concomitant]
     Active Substance: GATIFLOXACIN
     Dosage: LEFT EYE FOR 3 DAYS
     Route: 065
  6. RIOMET [Concomitant]
     Active Substance: METFORMIN HYDROCHLORIDE
     Route: 065
     Dates: start: 20120906
  7. MYDRIACYL [Concomitant]
     Active Substance: TROPICAMIDE
     Route: 065
  8. TROPICAMIDE. [Concomitant]
     Active Substance: TROPICAMIDE
     Route: 065
  9. DIAMOX SEQUELS [Suspect]
     Active Substance: ACETAZOLAMIDE
     Indication: PRODUCT USED FOR UNKNOWN INDICATION
     Route: 048
  10. OXYCONTIN [Concomitant]
     Active Substance: OXYCODONE HYDROCHLORIDE
     Route: 065
  11. TRAVATAN Z [Concomitant]
     Active Substance: TRAVOPROST
     Dosage: INSTILL ONE DROP AT BED TIME
     Route: 065
  12. COMTREX [Concomitant]
     Route: 065
  13. IMDUR [Concomitant]
     Active Substance: ISOSORBIDE MONONITRATE
  14. AVASTIN [Suspect]
     Active Substance: BEVACIZUMAB
     Indication: PRODUCT USED FOR UNKNOWN INDICATION
     Route: 065
  15. PROPARACAINE [Concomitant]
     Active Substance: PROPARACAINE
     Indication: ANAESTHESIA
  16. LIDOCAINE. [Concomitant]
     Active Substance: LIDOCAINE
     Indication: ANAESTHESIA
     Route: 065
  17. LUCENTIS [Suspect]
     Active Substance: RANIBIZUMAB
     Indication: DIABETIC RETINAL OEDEMA
     Route: 050
     Dates: end: 20130620
  18. PHENYLEPHRINE [Concomitant]
     Active Substance: PHENYLEPHRINE\PHENYLEPHRINE HYDROCHLORIDE
     Route: 065
  19. LUCENTIS [Suspect]
     Active Substance: RANIBIZUMAB
     Indication: DIABETIC RETINOPATHY
  20. NORCO [Concomitant]
     Active Substance: ACETAMINOPHEN\HYDROCODONE BITARTRATE
     Route: 065
  21. VALIUM [Concomitant]
     Active Substance: DIAZEPAM
     Route: 065
  22. GENTAMYCIN [Concomitant]
     Active Substance: GENTAMICIN
     Dosage: LEFT EYE FOR 3 DAYS
     Route: 065
  23. COMBIGAN [Concomitant]
     Active Substance: BRIMONIDINE TARTRATE\TIMOLOL MALEATE
     Indication: INTRAOCULAR LENS IMPLANT
     Route: 065
  24. LISINOPRIL. [Concomitant]
     Active Substance: LISINOPRIL
     Route: 065
     Dates: start: 20120906

REACTIONS (20)
  - Death [Fatal]
  - Heart rate decreased [Unknown]
  - Visual acuity reduced [Unknown]
  - Pneumonia [Unknown]
  - Myocardial infarction [Unknown]
  - Eye pruritus [Unknown]
  - Vitreous floaters [Recovered/Resolved]
  - Lacrimation increased [Unknown]
  - Dehydration [Unknown]
  - Pupillary light reflex tests abnormal [Unknown]
  - Visual impairment [Unknown]
  - Blood pressure decreased [Unknown]
  - Vision blurred [Unknown]
  - Ocular albinism [Unknown]
  - Eye haemorrhage [Unknown]
  - Hypertension [Unknown]
  - Infection [Unknown]
  - Pain [Unknown]
  - Pupillary reflex impaired [Unknown]
  - Visual impairment [Unknown]

NARRATIVE: CASE EVENT DATE: 20110209
